FAERS Safety Report 8794287 (Version 2)
Quarter: 2013Q1

REPORT INFORMATION
  Report Type: Spontaneous
  Country: BR (occurrence: BR)
  Receive Date: 20120917
  Receipt Date: 20130207
  Transmission Date: 20140127
  Serious: Yes (Hospitalization)
  Sender: FDA-Public Use
  Company Number: PHHY2012BR080028

PATIENT
  Sex: Male
  Weight: 74 kg

DRUGS (7)
  1. STARLIX [Suspect]
     Indication: DIABETES MELLITUS
     Dosage: 120 MG, BID
     Route: 048
     Dates: start: 201110
  2. STARLIX [Suspect]
     Dosage: 120 MG, TID
     Route: 048
  3. OMEPRAZOL [Concomitant]
     Indication: GASTROOESOPHAGEAL REFLUX DISEASE
     Dosage: 1 DF, QD
     Route: 048
  4. ATENOLOL [Concomitant]
     Indication: AORTIC ANEURYSM
     Dosage: 50 MG, A DAY
     Route: 048
  5. SIMVASTATIN [Concomitant]
     Indication: BLOOD CHOLESTEROL INCREASED
     Dosage: 20 MG, PER DAY
     Route: 048
  6. ASA [Concomitant]
     Indication: COAGULOPATHY
     Dosage: 2 DF, QD
     Route: 048
  7. MAREVAN [Concomitant]
     Indication: COAGULOPATHY
     Dosage: 2.5 MG, PER DAY
     Route: 048

REACTIONS (2)
  - Inguinal hernia [Not Recovered/Not Resolved]
  - Blood glucose increased [Not Recovered/Not Resolved]
